FAERS Safety Report 5642337-4 (Version None)
Quarter: 2008Q1

REPORT INFORMATION
  Report Type: 
  Country: None (occurrence: None)
  Receive Date: 20080228
  Receipt Date: 20080218
  Transmission Date: 20080703
  Serious: Yes (Other)
  Sender: FDA-Public Use
  Company Number: PHBS2008BR02515

PATIENT
  Sex: Female
  Weight: 50 kg

DRUGS (6)
  1. ZELMAC [Suspect]
     Indication: CONSTIPATION
     Dosage: 6 MG, QD
     Route: 048
     Dates: start: 20020101
  2. OLCADIL [Suspect]
     Indication: NERVOUS SYSTEM DISORDER
     Dosage: 1-2 MG,PRN
     Route: 048
     Dates: start: 19960101
  3. VYTORIN [Concomitant]
     Indication: BLOOD CHOLESTEROL
     Dosage: 1 TABLET/DAY
     Route: 048
  4. VENORUTON [Concomitant]
     Indication: PERIPHERAL VASCULAR DISORDER
     Dosage: 1000 MG/DAY
     Route: 048
  5. VENORUTON [Concomitant]
     Dosage: 500 MG/DAY
     Route: 048
  6. ANGIPRESS [Concomitant]
     Indication: CHEST PAIN
     Dosage: 1 TABLET/DAY
     Route: 048
     Dates: start: 20030101

REACTIONS (8)
  - ABDOMINAL DISTENSION [None]
  - AGITATION [None]
  - BLOOD PRESSURE INCREASED [None]
  - DIARRHOEA [None]
  - DRUG EFFECT DECREASED [None]
  - DRUG INEFFECTIVE [None]
  - FLATULENCE [None]
  - HEPATIC STEATOSIS [None]
